FAERS Safety Report 25372562 (Version 3)
Quarter: 2025Q3

REPORT INFORMATION
  Report Type: Report from Study
  Country: CA (occurrence: CA)
  Receive Date: 20250529
  Receipt Date: 20250911
  Transmission Date: 20251021
  Serious: No
  Sender: SANDOZ
  Company Number: CA-SANDOZ-SDZ2025CA036567

PATIENT
  Sex: Male

DRUGS (1)
  1. ERELZI [Suspect]
     Active Substance: ETANERCEPT-SZZS
     Indication: Tumour necrosis factor receptor-associated periodic syndrome
     Dosage: 50 MG, QW (25 MG/0.5 ML)
     Route: 058

REACTIONS (2)
  - Drug dose omission by device [Unknown]
  - Off label use [Unknown]
